FAERS Safety Report 7203319-4 (Version None)
Quarter: 2010Q4

REPORT INFORMATION
  Report Type: 
  Country: None (occurrence: None)
  Receive Date: 20101230
  Receipt Date: 20101220
  Transmission Date: 20110411
  Serious: No
  Sender: FDA-Public Use
  Company Number: US-BIOGENIDEC-2010BI044457

PATIENT
  Age: 55 Year
  Sex: Female

DRUGS (3)
  1. AVONEX [Suspect]
     Indication: MULTIPLE SCLEROSIS
     Route: 030
     Dates: start: 19990503
  2. AVONEX [Suspect]
     Route: 030
     Dates: start: 20040728
  3. AVONEX [Suspect]
     Route: 030
     Dates: start: 20100801

REACTIONS (1)
  - SKIN DISORDER [None]
